FAERS Safety Report 21234327 (Version 1)
Quarter: 2022Q3

REPORT INFORMATION
  Report Type: Spontaneous
  Country: CN (occurrence: CN)
  Receive Date: 20220819
  Receipt Date: 20220819
  Transmission Date: 20221026
  Serious: Yes (Other)
  Sender: FDA-Public Use
  Company Number: CN-teijin-202201564_FE_P_1

PATIENT

DRUGS (2)
  1. FEBUXOSTAT [Suspect]
     Active Substance: FEBUXOSTAT
     Indication: Product used for unknown indication
     Dosage: 20 MILLIGRAM, QD
     Route: 065
  2. FEBUXOSTAT [Suspect]
     Active Substance: FEBUXOSTAT
     Dosage: 40 MILLIGRAM, QD
     Route: 065

REACTIONS (8)
  - Acute coronary syndrome [Unknown]
  - Leukopenia [Unknown]
  - Thrombocytopenia [Unknown]
  - Vision blurred [Unknown]
  - Gout [Unknown]
  - Rash [Unknown]
  - Nausea [Unknown]
  - Hepatic function abnormal [Unknown]
